FAERS Safety Report 18990960 (Version 1)
Quarter: 2021Q1

REPORT INFORMATION
  Report Type: Spontaneous
  Country: JP (occurrence: JP)
  Receive Date: 20210310
  Receipt Date: 20210310
  Transmission Date: 20210420
  Serious: Yes (Other)
  Sender: FDA-Public Use
  Company Number: JP-ABBVIE-20K-087-3408510-00

PATIENT
  Sex: Female

DRUGS (1)
  1. HUMIRA [Suspect]
     Active Substance: ADALIMUMAB
     Indication: RHEUMATOID ARTHRITIS
     Dosage: AROUND A YEAR BEFORE
     Route: 058

REACTIONS (7)
  - Intraocular pressure increased [Unknown]
  - Pain [Not Recovered/Not Resolved]
  - Blindness unilateral [Unknown]
  - Uveitis [Unknown]
  - Back pain [Not Recovered/Not Resolved]
  - Ear pain [Not Recovered/Not Resolved]
  - Feeling hot [Not Recovered/Not Resolved]
